FAERS Safety Report 9994130 (Version 1)
Quarter: 2014Q1

REPORT INFORMATION
  Report Type: Report from Study
  Country: DE (occurrence: DE)
  Receive Date: 20140310
  Receipt Date: 20140310
  Transmission Date: 20141002
  Serious: Yes (Other)
  Sender: FDA-Public Use
  Company Number: DE-BAXTER-2014BAX010766

PATIENT
  Age: 31 Year
  Sex: Female

DRUGS (6)
  1. ENDOXAN 1G [Suspect]
     Indication: COMPLICATION OF PREGNANCY
     Route: 065
  2. ENDOXAN 1G [Suspect]
     Indication: IMMUNOSUPPRESSANT DRUG THERAPY
  3. ENDOXAN 1G [Suspect]
     Indication: ACQUIRED HAEMOPHILIA
  4. FEIBA NF 1000 E [Suspect]
     Indication: HAEMORRHAGE PROPHYLAXIS
     Dosage: 90-100 UG/KG OF BODY WEIGHT EVERY 2-3 HOURS
     Route: 065
  5. RFVIIA [Suspect]
     Indication: HAEMORRHAGE PROPHYLAXIS
     Dosage: 90-100 UG/KG OF BODY WEIGHT EVERY 2-3 HOURS
     Route: 065
  6. PREDNISONE [Suspect]
     Indication: IMMUNOSUPPRESSANT DRUG THERAPY
     Route: 065

REACTIONS (1)
  - No therapeutic response [Recovered/Resolved]
